FAERS Safety Report 4615170-X (Version None)
Quarter: 2005Q1

REPORT INFORMATION
  Report Type: 
  Country: None (occurrence: None)
  Receive Date: 20050322
  Receipt Date: 20050310
  Transmission Date: 20050727
  Serious: Yes (Hospitalization)
  Sender: FDA-Public Use
  Company Number: GP-GLAXOSMITHKLINE-B0374863A

PATIENT
  Sex: Female

DRUGS (1)
  1. DEROXAT [Suspect]
     Indication: ILL-DEFINED DISORDER
     Route: 048

REACTIONS (3)
  - LUNG DISORDER [None]
  - TOXIC EPIDERMAL NECROLYSIS [None]
  - VISUAL DISTURBANCE [None]
